FAERS Safety Report 9456863 (Version 1)
Quarter: 2013Q3

REPORT INFORMATION
  Report Type: Spontaneous
  Country: NL (occurrence: None)
  Receive Date: 20130809
  Receipt Date: 20130809
  Transmission Date: 20140515
  Serious: Yes (Death)
  Sender: FDA-Public Use
  Company Number: 2013P1015736

PATIENT
  Age: 58 Year
  Sex: Female

DRUGS (13)
  1. CEFUROXIME [Suspect]
     Indication: RETROPERITONEAL ABSCESS
  2. CIPROFLOXACIN [Suspect]
     Indication: RETROPERITONEAL ABSCESS
  3. CLEMASTINE [Concomitant]
  4. HYDROCORTISONE [Concomitant]
  5. PREDNISONE [Concomitant]
  6. UNSPECIFIED VASOPRESSORS [Concomitant]
  7. METRONIDAZOLE [Suspect]
  8. PIPERACILLIN/ TAZOBACTAM [Suspect]
  9. AMOXICILLIN [Suspect]
  10. VANCOMYCIN [Suspect]
  11. LINEZOLID [Suspect]
  12. CASPOFUNGIN [Suspect]
  13. SULFAMETHOXAZOLE AND TRIMETHOPRIM [Suspect]

REACTIONS (17)
  - Drug hypersensitivity [None]
  - Pyrexia [None]
  - Hypotension [None]
  - Respiratory failure [None]
  - Haemoglobin decreased [None]
  - Haematocrit decreased [None]
  - Metabolic acidosis [None]
  - Infection [None]
  - Acute respiratory distress syndrome [None]
  - Renal failure [None]
  - Leukocytosis [None]
  - Aspergillus infection [None]
  - Eosinophilia [None]
  - Dermatitis exfoliative [None]
  - Drug reaction with eosinophilia and systemic symptoms [None]
  - Dermatitis [None]
  - Livedo reticularis [None]
